FAERS Safety Report 7550623 (Version 3)
Quarter: 2012Q4

REPORT INFORMATION
  Report Type: 
  Country: US (occurrence: US)
  Receive Date: 20100823
  Receipt Date: 20121122
  Transmission Date: 20130627
  Serious: Yes (Death, Hospitalization, Other)
  Sender: FDA-Public Use
  Company Number: US-BRISTOL-MYERS SQUIBB COMPANY-15247463

PATIENT
  Age: 85 Year
  Sex: Male

DRUGS (3)
  1. COUMADIN TABS [Suspect]
     Dosage: film coated tabs
     Route: 048
  2. ASPIRIN [Suspect]
  3. PLAVIX [Suspect]

REACTIONS (5)
  - Renal failure [Fatal]
  - Cardiac disorder [Fatal]
  - Skin disorder [Unknown]
  - Contusion [Unknown]
  - Weight increased [Unknown]
